FAERS Safety Report 20930412 (Version 1)
Quarter: 2022Q2

REPORT INFORMATION
  Report Type: Report from Study
  Country: BR (occurrence: BR)
  Receive Date: 20220608
  Receipt Date: 20220608
  Transmission Date: 20220721
  Serious: Yes (Other)
  Sender: FDA-Public Use
  Company Number: BR-ABBVIE-22K-020-4293403-00

PATIENT
  Sex: Female
  Weight: 94 kg

DRUGS (3)
  1. RINVOQ [Suspect]
     Active Substance: UPADACITINIB
     Indication: Rheumatoid arthritis
     Route: 048
     Dates: start: 20210608
  2. RINVOQ [Suspect]
     Active Substance: UPADACITINIB
     Route: 048
  3. ATENOLOL [Concomitant]
     Active Substance: ATENOLOL
     Indication: Hypertension
     Route: 065

REACTIONS (9)
  - Foot fracture [Unknown]
  - Skin mass [Recovering/Resolving]
  - Skin haemorrhage [Recovering/Resolving]
  - Malaise [Unknown]
  - Pain in jaw [Unknown]
  - Blood pressure inadequately controlled [Unknown]
  - Wound complication [Unknown]
  - Wound [Unknown]
  - Oropharyngeal pain [Recovering/Resolving]

NARRATIVE: CASE EVENT DATE: 20220101
